FAERS Safety Report 24370649 (Version 3)
Quarter: 2025Q1

REPORT INFORMATION
  Report Type: Spontaneous
  Country: PT (occurrence: PT)
  Receive Date: 20240927
  Receipt Date: 20250108
  Transmission Date: 20250408
  Serious: Yes (Other)
  Sender: AUROBINDO
  Company Number: PT-BBM-PT-BBM-202402850

PATIENT
  Age: 29 Year
  Sex: Female

DRUGS (14)
  1. LIDOCAINE [Suspect]
     Active Substance: LIDOCAINE
     Indication: Delivery
     Route: 065
  2. LIDOCAINE [Suspect]
     Active Substance: LIDOCAINE
     Indication: Epidural analgesia
     Route: 065
  3. LIDOCAINE [Suspect]
     Active Substance: LIDOCAINE
     Route: 065
  4. LIDOCAINE [Suspect]
     Active Substance: LIDOCAINE
     Route: 065
  5. ROPIVACAINE [Suspect]
     Active Substance: ROPIVACAINE
     Indication: Epidural analgesia
     Route: 040
  6. ROPIVACAINE [Suspect]
     Active Substance: ROPIVACAINE
     Indication: Delivery
     Route: 040
  7. ROPIVACAINE [Suspect]
     Active Substance: ROPIVACAINE
     Route: 040
  8. ROPIVACAINE [Suspect]
     Active Substance: ROPIVACAINE
     Route: 040
  9. ROPIVACAINE [Suspect]
     Active Substance: ROPIVACAINE
     Route: 040
  10. ROPIVACAINE [Suspect]
     Active Substance: ROPIVACAINE
     Route: 040
  11. ROPIVACAINE [Suspect]
     Active Substance: ROPIVACAINE
     Indication: Epidural analgesia
     Route: 041
  12. ROPIVACAINE [Suspect]
     Active Substance: ROPIVACAINE
     Indication: Delivery
  13. SUFENTANIL [Suspect]
     Active Substance: SUFENTANIL
     Indication: Delivery
     Route: 040
  14. SUFENTANIL [Suspect]
     Active Substance: SUFENTANIL
     Indication: Epidural analgesia

REACTIONS (2)
  - Horner^s syndrome [Recovered/Resolved]
  - Maternal exposure during delivery [Unknown]
